FAERS Safety Report 13419688 (Version 1)
Quarter: 2017Q2

REPORT INFORMATION
  Report Type: Spontaneous
  Country: JP (occurrence: JP)
  Receive Date: 20170407
  Receipt Date: 20170407
  Transmission Date: 20170830
  Serious: Yes (Hospitalization)
  Sender: FDA-Public Use
  Company Number: JP-ACCORD-050040

PATIENT
  Age: 3 Month
  Sex: Female

DRUGS (3)
  1. TACROLIMUS. [Suspect]
     Active Substance: TACROLIMUS
     Indication: PROPHYLAXIS AGAINST GRAFT VERSUS HOST DISEASE
     Dosage: FROM DAY 1 TO DAY 39 AND THEN SWITCHED TO ORAL MEDICINE
     Route: 042
  2. METHYLPREDNISOLONE. [Suspect]
     Active Substance: METHYLPREDNISOLONE
     Indication: PROPHYLAXIS AGAINST GRAFT VERSUS HOST DISEASE
     Dosage: 1 MG/KG FROM DAY 1, INCREASED TO 2 MG/KG AT DAY 6 BECAUSE OF FEBRILE REACTION, TAPERED FROM DAY 22
  3. METHOTREXATE. [Suspect]
     Active Substance: METHOTREXATE
     Indication: PROPHYLAXIS AGAINST GRAFT VERSUS HOST DISEASE
     Dosage: 10 MG/M^2 AT DAY 4, 7 MG/ M^2 AT DAYS 6, 9, AND 14

REACTIONS (2)
  - Septic shock [Recovered/Resolved]
  - Bacterial infection [Recovered/Resolved]
